FAERS Safety Report 11788602 (Version 1)
Quarter: 2015Q4

REPORT INFORMATION
  Report Type: Spontaneous
  Country: US (occurrence: None)
  Receive Date: 20151125
  Receipt Date: 20151125
  Transmission Date: 20160305
  Serious: Yes (Hospitalization, Disabling)
  Sender: FDA-Public Use
  Company Number: US-ALSI-201500301

PATIENT
  Age: 59 Year
  Sex: Male

DRUGS (6)
  1. FENTANYL CITRATE. [Concomitant]
     Active Substance: FENTANYL CITRATE
  2. NITROUS OXIDE. [Suspect]
     Active Substance: NITROUS OXIDE
     Indication: MAINTENANCE OF ANAESTHESIA
     Dosage: RESPIRATORY
     Route: 055
  3. THIOPENTAL SODIUM. [Concomitant]
     Active Substance: THIOPENTAL SODIUM
  4. SUCCINYL CHLORIDE [Concomitant]
  5. MIDAZOLAM HYDROCHLORIDE. [Concomitant]
     Active Substance: MIDAZOLAM HYDROCHLORIDE
  6. HALOTHANE. [Concomitant]
     Active Substance: HALOTHANE

REACTIONS (5)
  - Tremor [None]
  - Dizziness [None]
  - Nervousness [None]
  - Vitamin B12 deficiency [None]
  - Subacute combined cord degeneration [None]
